FAERS Safety Report 9380916 (Version 2)
Quarter: 2013Q3

REPORT INFORMATION
  Report Type: Spontaneous
  Country: JP (occurrence: JP)
  Receive Date: 20130703
  Receipt Date: 20130904
  Transmission Date: 20140515
  Serious: Yes (Death, Other)
  Sender: FDA-Public Use
  Company Number: JP-ROCHE-1243761

PATIENT
  Age: 70 Year
  Sex: Male
  Weight: 65 kg

DRUGS (13)
  1. ACTEMRA [Suspect]
     Indication: CASTLEMAN^S DISEASE
     Dosage: DOSAGE IS UNCERTAIN.
     Route: 041
     Dates: start: 20121116, end: 20121129
  2. SOL-MELCORT [Concomitant]
     Route: 065
     Dates: start: 20121128, end: 20121204
  3. SOL-MELCORT [Concomitant]
     Route: 065
     Dates: start: 20121205, end: 20121207
  4. LASIX [Concomitant]
     Indication: PLEURAL EFFUSION
     Route: 065
     Dates: start: 20121113, end: 20121202
  5. ALBUMINAR [Concomitant]
     Indication: HYPOALBUMINAEMIA
     Route: 065
     Dates: start: 20121120, end: 20121130
  6. FLUCONAZOLE [Concomitant]
     Indication: PROPHYLAXIS
     Route: 048
     Dates: start: 20121109, end: 20121130
  7. FAMOTIDINE [Concomitant]
     Indication: PROPHYLAXIS
     Route: 048
     Dates: start: 20121109, end: 20121130
  8. METHYCOBAL [Concomitant]
     Indication: CEREBRAL HAEMORRHAGE
     Route: 048
     Dates: start: 20121109, end: 20121130
  9. FEBURIC [Concomitant]
     Indication: PROPHYLAXIS
     Route: 048
     Dates: start: 20121109, end: 20121130
  10. AMLODIN [Concomitant]
     Indication: HYPERTENSION
     Route: 048
     Dates: end: 20121130
  11. CARDENALIN [Concomitant]
     Indication: HYPERTENSION
     Route: 048
     Dates: start: 20121116, end: 20121130
  12. KALIMATE [Concomitant]
     Indication: HYPERKALAEMIA
     Route: 048
     Dates: start: 20121116, end: 20121130
  13. CEFEPIME DIHYDROCHLORIDE [Concomitant]
     Indication: CASTLEMAN^S DISEASE
     Route: 042
     Dates: start: 20121127, end: 20121209

REACTIONS (5)
  - Multi-organ failure [Fatal]
  - Renal impairment [Unknown]
  - Gastrointestinal haemorrhage [Unknown]
  - Dehydration [Unknown]
  - Drug ineffective [Unknown]
